FAERS Safety Report 14628483 (Version 5)
Quarter: 2019Q1

REPORT INFORMATION
  Report Type: Report from Study
  Country: JP (occurrence: JP)
  Receive Date: 20180312
  Receipt Date: 20190129
  Transmission Date: 20190417
  Serious: Yes (Other)
  Sender: FDA-Public Use
  Company Number: PHJP2017JP037178

PATIENT
  Age: 62 Year
  Sex: Male
  Weight: 71.6 kg

DRUGS (33)
  1. COSENTYX [Suspect]
     Active Substance: SECUKINUMAB
     Dosage: 300 MG, 4W
     Route: 058
     Dates: start: 20171006, end: 20171006
  2. MIYA-BM [Concomitant]
     Active Substance: CLOSTRIDIUM BUTYRICUM SPORES STRAIN M-55
     Indication: DIARRHOEA
     Dosage: 9 G, UNK
     Route: 048
     Dates: start: 20170901, end: 20170906
  3. ALLEGRA [Concomitant]
     Active Substance: FEXOFENADINE HYDROCHLORIDE
     Indication: PUSTULAR PSORIASIS
  4. MUCOSOLVAN [Concomitant]
     Active Substance: AMBROXOL HYDROCHLORIDE
     Indication: VIRAL INFECTION
     Dosage: 45 MG, UNK
     Route: 048
     Dates: start: 20180202
  5. ONON [Concomitant]
     Active Substance: PRANLUKAST
     Indication: RHINITIS ALLERGIC
     Dosage: 225 MG, UNK
     Route: 048
     Dates: start: 20170728, end: 20171129
  6. ALLEGRA [Concomitant]
     Active Substance: FEXOFENADINE HYDROCHLORIDE
     Indication: PRODUCT USED FOR UNKNOWN INDICATION
     Dosage: 120 MG, UNK
     Route: 048
     Dates: start: 20171205
  7. COSENTYX [Suspect]
     Active Substance: SECUKINUMAB
     Dosage: 300 MG, 4W
     Route: 058
     Dates: start: 20170905, end: 20170905
  8. METFORMIN [Suspect]
     Active Substance: METFORMIN HYDROCHLORIDE
     Indication: DIABETES MELLITUS
     Dosage: 500 MG, QD
     Route: 048
     Dates: start: 20171113, end: 20171211
  9. ALEVIATIN [Concomitant]
     Active Substance: PHENYTOIN SODIUM
     Dosage: 150 MG, UNK
     Route: 048
     Dates: start: 20180112
  10. MYSER [Concomitant]
     Dosage: 0.15 G, UNK
     Route: 061
     Dates: start: 20180608
  11. PATANOL [Concomitant]
     Active Substance: OLOPATADINE HYDROCHLORIDE
     Indication: CONJUNCTIVITIS ALLERGIC
     Dosage: UNK UNK, TID
     Route: 047
     Dates: start: 20171006
  12. CLARITIN [Concomitant]
     Active Substance: LORATADINE
     Dosage: 20 MG, UNK
     Route: 048
     Dates: start: 20171130, end: 20171205
  13. TEGRETOL [Concomitant]
     Active Substance: CARBAMAZEPINE
     Indication: EPILEPSY
     Dosage: 200 MG, UNK
     Route: 048
  14. AZUNOL [Concomitant]
     Active Substance: SODIUM GUALENATE
     Indication: PSORIASIS
     Dosage: TOPICAL USE, BID
     Route: 061
     Dates: start: 20170728, end: 20170920
  15. OXAROL [Concomitant]
     Active Substance: MAXACALCITOL
     Indication: PSORIASIS
     Dosage: TOPICAL USE, BID
     Route: 061
     Dates: start: 20171122
  16. HEPARINOID [Concomitant]
     Active Substance: CHONDROITIN SULFATE (BOVINE)
     Indication: PSORIASIS
     Dosage: TOPICAL USE, BID
     Route: 061
     Dates: start: 20171122
  17. CALONAL [Concomitant]
     Active Substance: ACETAMINOPHEN
     Indication: VIRAL INFECTION
     Dosage: 300 MG, PRN
     Route: 048
     Dates: start: 20180126
  18. FAMOTIDINE. [Concomitant]
     Active Substance: FAMOTIDINE
     Indication: GASTRIC ULCER
     Dosage: 20 MG, UNK
     Route: 048
     Dates: start: 20171207, end: 20171219
  19. ZYLORIC [Concomitant]
     Active Substance: ALLOPURINOL
     Indication: HYPERURICAEMIA
     Dosage: 200 MG, UNK
     Route: 048
  20. ONON [Concomitant]
     Active Substance: PRANLUKAST
     Indication: ASTHMA
     Dosage: 225 MG, UNK
     Route: 048
     Dates: end: 20170706
  21. ONON [Concomitant]
     Active Substance: PRANLUKAST
     Dosage: 450 MG, UNK
     Route: 048
     Dates: start: 20171130, end: 20171205
  22. LIPIDIL [Concomitant]
     Active Substance: FENOFIBRATE
     Indication: HYPERLIPIDAEMIA
     Dosage: 106.6 MG, UNK
     Route: 048
  23. MYSER [Concomitant]
     Indication: PSORIASIS
     Dosage: TOPICAL USE, BID
     Route: 061
     Dates: start: 20170728, end: 20170920
  24. PATANOL [Concomitant]
     Active Substance: OLOPATADINE HYDROCHLORIDE
     Dosage: UNK, PRN
     Route: 047
     Dates: start: 20180427, end: 20180427
  25. CEFCAPENE PIVOXIL HYDROCHLORIDE [Concomitant]
     Active Substance: CEFCAPENE PIVOXIL HYDROCHLORIDE
     Indication: SKIN BACTERIAL INFECTION
     Dosage: 300 MG, UNK
     Route: 048
     Dates: start: 20171213, end: 20171215
  26. MUCODAIN [Concomitant]
     Indication: VIRAL INFECTION
     Dosage: 1500 MG, UNK
     Route: 048
     Dates: start: 20180202
  27. COSENTYX [Suspect]
     Active Substance: SECUKINUMAB
     Indication: PUSTULAR PSORIASIS
     Dosage: 300 MG, QW
     Route: 058
     Dates: start: 20170707, end: 20170804
  28. EQUA TAB [Suspect]
     Active Substance: VILDAGLIPTIN
     Indication: DIABETES MELLITUS
     Dosage: 100 MG, QD
     Route: 048
  29. ALEVIATIN [Concomitant]
     Active Substance: PHENYTOIN SODIUM
     Indication: EPILEPSY
     Dosage: 150 MG, UNK
     Route: 048
  30. AZUNOL [Concomitant]
     Active Substance: SODIUM GUALENATE
     Dosage: TOPICAL USE, BID
     Route: 061
     Dates: start: 20170921
  31. MYSER [Concomitant]
     Dosage: TOPICAL USE, BID
     Route: 061
     Dates: start: 20170921
  32. CLARITIN [Concomitant]
     Active Substance: LORATADINE
     Indication: PRURITUS
     Dosage: 10 MG, UNK
     Route: 048
     Dates: start: 20171122, end: 20171129
  33. CALONAL [Concomitant]
     Active Substance: ACETAMINOPHEN
     Indication: HEADACHE
     Dosage: 300 MG, PRN
     Route: 048
     Dates: start: 20171205, end: 20171215

REACTIONS (23)
  - Bacterial infection [Recovered/Resolved]
  - Skin erosion [Recovered/Resolved]
  - Eosinophil count increased [Unknown]
  - Pustular psoriasis [Recovered/Resolved]
  - Gallbladder enlargement [Unknown]
  - Pyelonephritis [Recovered/Resolved]
  - Localised oedema [Recovered/Resolved]
  - Drug eruption [Recovered/Resolved]
  - Herpes zoster [Recovering/Resolving]
  - Erythema [Unknown]
  - Bacterial infection [Recovered/Resolved]
  - Pharyngitis [Recovered/Resolved]
  - Face oedema [Unknown]
  - Pyrexia [Recovered/Resolved]
  - Diabetes mellitus [Not Recovered/Not Resolved]
  - Conjunctivitis allergic [Unknown]
  - Hepatic steatosis [Unknown]
  - Influenza [Recovered/Resolved]
  - Erysipelas [Recovered/Resolved]
  - Interstitial lung disease [Not Recovered/Not Resolved]
  - Concomitant disease aggravated [Unknown]
  - Pyelonephritis [Recovered/Resolved]
  - Disease progression [Recovered/Resolved]

NARRATIVE: CASE EVENT DATE: 201708
